FAERS Safety Report 20609350 (Version 1)
Quarter: 2022Q1

REPORT INFORMATION
  Report Type: Report from Study
  Country: BR (occurrence: BR)
  Receive Date: 20220317
  Receipt Date: 20220317
  Transmission Date: 20220423
  Serious: Yes (Other)
  Sender: FDA-Public Use
  Company Number: BR-JNJFOC-20220326399

PATIENT
  Sex: Female

DRUGS (12)
  1. INFLIXIMAB [Suspect]
     Active Substance: INFLIXIMAB
     Indication: Crohn^s disease
     Route: 042
     Dates: start: 20210726
  2. COVID-19 VACCINE [Concomitant]
  3. CYCLOBENZAPRINE [Concomitant]
     Active Substance: CYCLOBENZAPRINE
     Indication: Pain
  4. CAFFEINE\DIPYRONE\ORPHENADRINE [Concomitant]
     Active Substance: CAFFEINE\DIPYRONE\ORPHENADRINE
     Indication: Pain
  5. HYDROCHLOROTHIAZIDE\VALSARTAN [Concomitant]
     Active Substance: HYDROCHLOROTHIAZIDE\VALSARTAN
     Indication: Hypertension
  6. BISOPROLOL FUMARATE [Concomitant]
     Active Substance: BISOPROLOL FUMARATE
     Indication: Hypertension
  7. DIOSMIN [Concomitant]
     Active Substance: DIOSMIN
     Dosage: 2 PILLS A DAY
  8. CARTIGEN C [Concomitant]
  9. BIOTIN [Concomitant]
     Active Substance: BIOTIN
     Indication: Alopecia
  10. BIOTIN [Concomitant]
     Active Substance: BIOTIN
     Indication: Onychoclasis
  11. LUFTAL [DIMETICONE] [Concomitant]
  12. DIGESAN [BROMOPRIDE] [Concomitant]

REACTIONS (4)
  - Haemorrhage [Recovered/Resolved]
  - Muscle spasms [Recovered/Resolved]
  - Arthralgia [Recovering/Resolving]
  - COVID-19 [Recovered/Resolved]
